FAERS Safety Report 7104917-9 (Version None)
Quarter: 2010Q4

REPORT INFORMATION
  Report Type: 
  Country: None (occurrence: None)
  Receive Date: 20101110
  Receipt Date: 20101027
  Transmission Date: 20110411
  Serious: Yes (Hospitalization)
  Sender: FDA-Public Use
  Company Number: 2010EK000038

PATIENT
  Sex: Male

DRUGS (1)
  1. CARDENE [Suspect]
     Indication: HYPERTENSION
     Dosage: X1; IV
     Route: 042
     Dates: start: 20101020, end: 20101020

REACTIONS (1)
  - ANAPHYLACTIC REACTION [None]
